FAERS Safety Report 8035519-8 (Version None)
Quarter: 2012Q1

REPORT INFORMATION
  Report Type: 
  Country: None (occurrence: None)
  Receive Date: 20120111
  Receipt Date: 20120105
  Transmission Date: 20120608
  Serious: Yes (Hospitalization, Other)
  Sender: FDA-Public Use
  Company Number: JP-CELGENEUS-087-21880-10102084

PATIENT
  Age: 83 Year
  Sex: Male

DRUGS (20)
  1. DEXAMETHASONE ACETATE [Suspect]
     Dosage: 8 MILLIGRAM
     Route: 048
     Dates: start: 20110108, end: 20110115
  2. BAKTAR [Concomitant]
     Indication: PROPHYLAXIS
     Dosage: 1 TABLET
     Route: 048
     Dates: start: 20101108
  3. PLETAL [Concomitant]
     Dosage: 200 MILLIGRAM
     Route: 048
     Dates: start: 20101008
  4. LANSOPRAZOLE [Concomitant]
     Indication: PROPHYLAXIS
     Dosage: 30 MILLIGRAM
     Route: 048
     Dates: start: 20101008
  5. CLARITHROMYCIN [Suspect]
     Indication: PROPHYLAXIS
     Dosage: 400 MILLIGRAM
     Route: 048
     Dates: start: 20101008
  6. SIGMART [Concomitant]
     Indication: ANGINA PECTORIS
     Dosage: 15 MILLIGRAM
     Route: 048
     Dates: start: 20101008
  7. BAKTAR [Concomitant]
     Indication: HYPERTENSION
     Dosage: 1 TABLET
     Route: 048
     Dates: start: 20101008, end: 20101107
  8. REVLIMID [Suspect]
     Dosage: 15 MILLIGRAM
     Route: 048
     Dates: start: 20110107, end: 20110116
  9. DEXAMETHASONE ACETATE [Suspect]
     Indication: MULTIPLE MYELOMA
     Dosage: 8 MILLIGRAM
     Route: 048
     Dates: start: 20101009, end: 20101023
  10. OPALMON [Concomitant]
     Indication: INFARCTION
     Dosage: 15 MILLIGRAM
     Route: 048
     Dates: start: 20101008
  11. REVLIMID [Suspect]
     Indication: MULTIPLE MYELOMA
     Dosage: 25 MILLIGRAM
     Route: 048
     Dates: start: 20101008, end: 20101022
  12. REVLIMID [Suspect]
     Dosage: 15 MILLIGRAM
     Route: 048
     Dates: start: 20101108, end: 20101118
  13. DEXAMETHASONE ACETATE [Suspect]
     Dosage: 8 MILLIGRAM
     Route: 048
     Dates: start: 20101109, end: 20101116
  14. ASPIRIN [Concomitant]
     Indication: ANGINA PECTORIS
     Dosage: 100 MILLIGRAM
     Route: 048
     Dates: start: 20101008
  15. ISOSORBIDE DINITRATE [Concomitant]
     Indication: ANGINA PECTORIS
     Dosage: 40 MILLIGRAM
     Route: 062
     Dates: start: 20101008
  16. MUCOSTA [Concomitant]
     Indication: PROPHYLAXIS
     Dosage: 300 MILLIGRAM
     Route: 048
     Dates: start: 20101008
  17. MICARDIS [Concomitant]
     Indication: HYPERTENSION
     Dosage: 40 MILLIGRAM
     Route: 048
     Dates: start: 20101008
  18. URSO 250 [Concomitant]
     Dosage: 300 MILLIGRAM
     Route: 048
     Dates: start: 20101008
  19. ALENDRONATE SODIUM [Concomitant]
     Indication: PROPHYLAXIS
     Dosage: 5 MILLIGRAM
     Route: 048
     Dates: start: 20101008
  20. PLAVIX [Concomitant]
     Indication: ANGINA PECTORIS
     Dosage: 75 MILLIGRAM
     Route: 048
     Dates: start: 20101127

REACTIONS (4)
  - PLATELET COUNT DECREASED [None]
  - HAEMOGLOBIN DECREASED [None]
  - ELECTROCARDIOGRAM QT PROLONGED [None]
  - MALAISE [None]
